FAERS Safety Report 15749521 (Version 1)
Quarter: 2018Q4

REPORT INFORMATION
  Report Type: Spontaneous
  Country: US (occurrence: US)
  Receive Date: 20181221
  Receipt Date: 20181221
  Transmission Date: 20190205
  Serious: Yes (Other)
  Sender: FDA-Public Use
  Company Number: US-ACCORD-096592

PATIENT
  Age: 60 Year
  Sex: Female
  Weight: 53.52 kg

DRUGS (7)
  1. ALPHAGAN P [Concomitant]
     Active Substance: BRIMONIDINE TARTRATE
     Dosage: DROPS IN BOTH EYES/3 TIMES A DAY
  2. SINGULAIR [Concomitant]
     Active Substance: MONTELUKAST SODIUM
  3. ANASTROZOLE ACCORD [Suspect]
     Active Substance: ANASTROZOLE
     Indication: BREAST CANCER
     Dosage: DISCONTINUED AND RESTARTED ON 01-OCT-2018
     Route: 048
     Dates: start: 20180701
  4. CLONAZEPAM. [Suspect]
     Active Substance: CLONAZEPAM
     Indication: SLEEP DISORDER
     Route: 048
  5. DORZOLAMIDE/TIMOLOL [Concomitant]
     Dosage: DROPS IN BOTH EYES/ 2 TIMES A DAY
  6. TRAVATAN Z [Concomitant]
     Active Substance: TRAVOPROST
     Dosage: DROPS IN BOTH EYES /AT NIGHT
  7. GABAPENTIN. [Concomitant]
     Active Substance: GABAPENTIN
     Route: 048

REACTIONS (4)
  - Radiation pneumonitis [Not Recovered/Not Resolved]
  - Malaise [Not Recovered/Not Resolved]
  - Eye haemorrhage [Not Recovered/Not Resolved]
  - Hypotension [Not Recovered/Not Resolved]
